FAERS Safety Report 18965699 (Version 1)
Quarter: 2021Q1

REPORT INFORMATION
  Report Type: Spontaneous
  Country: US (occurrence: US)
  Receive Date: 20210303
  Receipt Date: 20210303
  Transmission Date: 20210420
  Serious: Yes (Disabling, Other)
  Sender: FDA-Public Use
  Company Number: US-REGENERON PHARMACEUTICALS, INC.-2021-27767

PATIENT

DRUGS (3)
  1. EYLEA [Suspect]
     Active Substance: AFLIBERCEPT
     Dosage: UNK, RIGHT EYE, EVERY 4 WEEKS
     Route: 031
     Dates: start: 202010, end: 202010
  2. ASPIRIN                            /00002701/ [Concomitant]
     Active Substance: ASPIRIN
     Indication: PRODUCT USED FOR UNKNOWN INDICATION
     Dosage: UNK
  3. EYLEA [Suspect]
     Active Substance: AFLIBERCEPT
     Indication: EYE HAEMORRHAGE
     Dosage: UNK, RIGHT EYE, EVERY 2 OR 3 MONTHS
     Route: 031

REACTIONS (1)
  - Blindness unilateral [Unknown]

NARRATIVE: CASE EVENT DATE: 2020
